FAERS Safety Report 6223626-1 (Version None)
Quarter: 2009Q2

REPORT INFORMATION
  Report Type: 
  Country: None (occurrence: None)
  Receive Date: 20090611
  Receipt Date: 20090512
  Transmission Date: 20091009
  Serious: No
  Sender: FDA-Public Use
  Company Number: US-ABBOTT-08P-163-0455344-00

PATIENT
  Sex: Female

DRUGS (2)
  1. HUMIRA [Suspect]
     Indication: RHEUMATOID ARTHRITIS
     Route: 058
     Dates: start: 20080228, end: 20080301
  2. HUMIRA [Suspect]
     Route: 058
     Dates: start: 20081101

REACTIONS (6)
  - ECZEMA [None]
  - FUNGAL INFECTION [None]
  - NASOPHARYNGITIS [None]
  - RASH [None]
  - SKIN DISCOLOURATION [None]
  - SKIN LACERATION [None]
